FAERS Safety Report 18532055 (Version 1)
Quarter: 2020Q4

REPORT INFORMATION
  Report Type: Spontaneous
  Country: MA (occurrence: MA)
  Receive Date: 20201123
  Receipt Date: 20201123
  Transmission Date: 20210114
  Serious: Yes (Other)
  Sender: FDA-Public Use
  Company Number: MA-LUPIN PHARMACEUTICALS INC.-2020-09160

PATIENT
  Age: 15 Year
  Sex: Female

DRUGS (6)
  1. AZITHROMYCIN ANHYDROUS. [Suspect]
     Active Substance: AZITHROMYCIN ANHYDROUS
     Dosage: 5 MILLIGRAM/KILOGRAM, QD  (AFTER DAY 1, FOR 5 DAYS)
     Route: 065
     Dates: start: 2020, end: 2020
  2. AZITHROMYCIN ANHYDROUS. [Suspect]
     Active Substance: AZITHROMYCIN ANHYDROUS
     Indication: COVID-19
     Dosage: 10 MILLIGRAM/KILOGRAM, QD  (ON DAY 1)
     Route: 065
     Dates: start: 2020, end: 2020
  3. CHLOROQUINE. [Suspect]
     Active Substance: CHLOROQUINE
     Indication: COVID-19
     Dosage: 5 MILLIGRAM/KILOGRAM, BID
     Route: 065
     Dates: start: 2020, end: 2020
  4. ZINC. [Suspect]
     Active Substance: ZINC
     Indication: COVID-19
     Dosage: 90 MILLIGRAM, BID
     Route: 065
     Dates: start: 2020, end: 2020
  5. VITAMIN C [Suspect]
     Active Substance: ASCORBIC ACID
     Indication: COVID-19
     Dosage: 1 GRAM, TID
     Route: 065
     Dates: start: 2020, end: 2020
  6. HYDROXYCHLOROQUINE [Suspect]
     Active Substance: HYDROXYCHLOROQUINE
     Indication: COVID-19
     Dosage: 5 MILLIGRAM/KILOGRAM, BID
     Route: 065
     Dates: start: 2020, end: 2020

REACTIONS (4)
  - Abdominal pain upper [Recovering/Resolving]
  - Off label use [Unknown]
  - Nausea [Recovering/Resolving]
  - Diplopia [Recovering/Resolving]

NARRATIVE: CASE EVENT DATE: 2020
